FAERS Safety Report 13153196 (Version 1)
Quarter: 2017Q1

REPORT INFORMATION
  Report Type: Spontaneous
  Country: US (occurrence: US)
  Receive Date: 20170126
  Receipt Date: 20170126
  Transmission Date: 20170428
  Serious: No
  Sender: FDA-Public Use
  Company Number: US-TEVA-725514ACC

PATIENT
  Age: 31 Year
  Sex: Female
  Weight: 64.92 kg

DRUGS (3)
  1. PARAGARD T 380A [Suspect]
     Active Substance: COPPER
     Indication: CONTRACEPTION
     Dates: start: 20161219, end: 20161227
  2. LEVOTHYROXINE. [Concomitant]
     Active Substance: LEVOTHYROXINE
     Indication: HYPOTHYROIDISM
  3. CITALOPRAM [Concomitant]
     Active Substance: CITALOPRAM HYDROBROMIDE
     Indication: ANXIETY

REACTIONS (6)
  - Pain [Recovered/Resolved]
  - Headache [Not Recovered/Not Resolved]
  - Hyperacusis [Not Recovered/Not Resolved]
  - Hypersensitivity [Unknown]
  - Photophobia [Not Recovered/Not Resolved]
  - Migraine [Not Recovered/Not Resolved]

NARRATIVE: CASE EVENT DATE: 20161219
